FAERS Safety Report 13447588 (Version 1)
Quarter: 2017Q2

REPORT INFORMATION
  Report Type: Spontaneous
  Country: GR (occurrence: GR)
  Receive Date: 20170417
  Receipt Date: 20170417
  Transmission Date: 20170830
  Serious: Yes (Life-Threatening, Other)
  Sender: FDA-Public Use
  Company Number: GR-GLAXOSMITHKLINE-GR2017054016

PATIENT
  Age: 33 Year
  Sex: Female
  Weight: 64 kg

DRUGS (5)
  1. SPIROPENT [Suspect]
     Active Substance: CLENBUTEROL HYDROCHLORIDE
     Indication: BRONCHITIS
     Dosage: 6 DF, BID, 6CCX2
     Route: 048
     Dates: start: 20170328, end: 20170331
  2. NOTORIUM [Concomitant]
     Indication: PRODUCT USED FOR UNKNOWN INDICATION
     Dosage: 1 DF, QD
     Route: 048
     Dates: start: 20060101
  3. JADIX [Concomitant]
     Dosage: 1 DF, QD, 100 MG
     Route: 048
     Dates: start: 20060101
  4. ZINADOL [Suspect]
     Active Substance: CEFUROXIME AXETIL
     Indication: BRONCHITIS
     Dosage: 1 DF, BID
     Route: 048
     Dates: start: 20170328, end: 20170331
  5. JADIX [Concomitant]
     Indication: EPILEPSY
     Dosage: 1 DF, QD, 50 MG
     Route: 048
     Dates: start: 20060101

REACTIONS (1)
  - Epilepsy [Recovering/Resolving]

NARRATIVE: CASE EVENT DATE: 20170331
